FAERS Safety Report 16911572 (Version 1)
Quarter: 2019Q4

REPORT INFORMATION
  Report Type: Spontaneous
  Country: JP (occurrence: JP)
  Receive Date: 20191013
  Receipt Date: 20191013
  Transmission Date: 20200122
  Serious: Yes (Hospitalization, Other)
  Sender: FDA-Public Use
  Company Number: JP-MTPC-MTPC2019-0073814

PATIENT

DRUGS (1)
  1. RADICUT BAG FOR I.V. INFUSION 30MG [Suspect]
     Active Substance: EDARAVONE
     Indication: CEREBRAL INFARCTION
     Route: 041

REACTIONS (2)
  - Hepatic function abnormal [Recovering/Resolving]
  - Cardiac tamponade [Recovering/Resolving]
